FAERS Safety Report 6581874-5 (Version None)
Quarter: 2010Q1

REPORT INFORMATION
  Report Type: 
  Country: None (occurrence: None)
  Receive Date: 20100215
  Receipt Date: 20100211
  Transmission Date: 20100710
  Serious: Yes (Death, Hospitalization)
  Sender: FDA-Public Use
  Company Number: BE-ASTRAZENECA-2010SE04433

PATIENT
  Age: 54 Year
  Sex: Female
  Weight: 74 kg

DRUGS (22)
  1. SEROQUEL [Suspect]
     Indication: BIPOLAR I DISORDER
     Route: 048
     Dates: start: 20090701
  2. SEROQUEL [Suspect]
     Indication: AGITATION
     Route: 048
     Dates: start: 20090701
  3. SEROQUEL [Suspect]
     Route: 048
     Dates: start: 20090801
  4. SEROQUEL [Suspect]
     Route: 048
     Dates: start: 20090801
  5. SEROQUEL [Suspect]
     Route: 048
     Dates: start: 20091007
  6. SEROQUEL [Suspect]
     Route: 048
     Dates: start: 20091007
  7. SEROQUEL [Suspect]
     Route: 048
     Dates: start: 20091109
  8. SEROQUEL [Suspect]
     Route: 048
     Dates: start: 20091109
  9. SEROQUEL [Suspect]
     Route: 048
     Dates: start: 20091110, end: 20091124
  10. SEROQUEL [Suspect]
     Route: 048
     Dates: start: 20091110, end: 20091124
  11. SEROQUEL [Suspect]
     Route: 048
     Dates: start: 20091125
  12. SEROQUEL [Suspect]
     Route: 048
     Dates: start: 20091125
  13. SEROQUEL [Suspect]
     Route: 048
     Dates: start: 20091126, end: 20091203
  14. SEROQUEL [Suspect]
     Route: 048
     Dates: start: 20091126, end: 20091203
  15. SEROQUEL [Suspect]
     Route: 048
     Dates: start: 20091204, end: 20091204
  16. SEROQUEL [Suspect]
     Route: 048
     Dates: start: 20091204, end: 20091204
  17. SEROQUEL [Suspect]
     Route: 048
     Dates: start: 20091205, end: 20091221
  18. SEROQUEL [Suspect]
     Route: 048
     Dates: start: 20091205, end: 20091221
  19. INVEGA [Concomitant]
     Indication: AGITATION
     Route: 048
     Dates: start: 20091110, end: 20091223
  20. ABILIFY [Concomitant]
     Indication: AGITATION
     Route: 048
     Dates: start: 20091112
  21. DEPAKENE [Concomitant]
     Indication: AGITATION
     Route: 048
     Dates: start: 20091126, end: 20091221
  22. CAMCOLIT [Concomitant]
     Indication: AGITATION
     Dates: start: 20091207, end: 20091221

REACTIONS (3)
  - AGITATION [None]
  - COLONIC PSEUDO-OBSTRUCTION [None]
  - DYSPHORIA [None]
